FAERS Safety Report 16181450 (Version 1)
Quarter: 2019Q2

REPORT INFORMATION
  Report Type: Spontaneous
  Country: NO (occurrence: NO)
  Receive Date: 20190410
  Receipt Date: 20190410
  Transmission Date: 20190711
  Serious: Yes (Other)
  Sender: FDA-Public Use
  Company Number: NO-GE HEALTHCARE LIFE SCIENCES-2019CSU000198

PATIENT

DRUGS (2)
  1. OMNIPAQUE [Suspect]
     Active Substance: IOHEXOL
     Indication: PRODUCT USED FOR UNKNOWN INDICATION
     Dosage: UNK UNK, SINGLE
     Route: 062
     Dates: start: 2002, end: 2002
  2. OMNIPAQUE [Suspect]
     Active Substance: IOHEXOL
     Indication: COMPUTERISED TOMOGRAM
     Dosage: UNK UNK, SINGLE
     Route: 065
     Dates: start: 20021208, end: 20021208

REACTIONS (6)
  - Contrast media allergy [Unknown]
  - Off label use [Recovered/Resolved]
  - Sneezing [Unknown]
  - Rhinorrhoea [Unknown]
  - Asthma [Unknown]
  - Occupational exposure to product [Unknown]

NARRATIVE: CASE EVENT DATE: 2002
